FAERS Safety Report 4667224-X (Version None)
Quarter: 2005Q2

REPORT INFORMATION
  Report Type: 
  Country: None (occurrence: None)
  Receive Date: 20050520
  Receipt Date: 20050103
  Transmission Date: 20051028
  Serious: Yes (Hospitalization)
  Sender: FDA-Public Use
  Company Number: US-BRISTOL-MYERS SQUIBB COMPANY-12811493

PATIENT
  Age: 65 Year
  Sex: Male
  Weight: 64 kg

DRUGS (9)
  1. SINEMET [Suspect]
     Indication: PARKINSON'S DISEASE
     Route: 048
     Dates: start: 20041229, end: 20050103
  2. COUMADIN [Concomitant]
     Dates: start: 20041231
  3. LOVENOX [Concomitant]
     Dates: start: 20041231
  4. NOVOLOG [Concomitant]
     Dates: start: 20041229
  5. INSULIN SLIDING SCALE [Concomitant]
     Dates: start: 20041229
  6. POTASSIUM CHLORIDE [Concomitant]
     Dates: start: 20041229
  7. PROVENTIL [Concomitant]
     Route: 055
     Dates: start: 20050101
  8. RESTORIL [Concomitant]
     Dates: start: 20041229
  9. SURFAK [Concomitant]
     Dates: start: 20041229

REACTIONS (1)
  - NEUROLEPTIC MALIGNANT SYNDROME [None]
